FAERS Safety Report 10364310 (Version 1)
Quarter: 2014Q3

REPORT INFORMATION
  Report Type: Spontaneous
  Country: BR (occurrence: BR)
  Receive Date: 20140806
  Receipt Date: 20140806
  Transmission Date: 20150326
  Serious: Yes (Hospitalization)
  Sender: FDA-Public Use
  Company Number: BR-ROCHE-1445200

PATIENT
  Age: 13 Year

DRUGS (1)
  1. PULMOZYME [Suspect]
     Active Substance: DORNASE ALFA
     Indication: CYSTIC FIBROSIS
     Route: 055

REACTIONS (1)
  - Disease progression [Not Recovered/Not Resolved]
